FAERS Safety Report 23081350 (Version 1)
Quarter: 2023Q4

REPORT INFORMATION
  Report Type: Other
  Country: IL (occurrence: IL)
  Receive Date: 20231018
  Receipt Date: 20231018
  Transmission Date: 20240109
  Serious: Yes (Hospitalization, Other)
  Sender: FDA-Public Use
  Company Number: IL-Square-000181

PATIENT
  Age: 17 Year
  Sex: Male

DRUGS (2)
  1. ACYCLOVIR [Suspect]
     Active Substance: ACYCLOVIR
     Indication: Varicella
  2. CALAMINE LOTION [Suspect]
     Active Substance: CALAMINE LOTION
     Indication: Rash pruritic
     Dosage: CALAMINE LOTION

REACTIONS (1)
  - Pemphigoid [Recovered/Resolved]
